FAERS Safety Report 7802408-0 (Version None)
Quarter: 2011Q4

REPORT INFORMATION
  Report Type: 
  Country: None (occurrence: None)
  Receive Date: 20111007
  Receipt Date: 20111005
  Transmission Date: 20120403
  Serious: Yes (Hospitalization)
  Sender: FDA-Public Use
  Company Number: NZ-PFIZER INC-2011149032

PATIENT
  Age: 67 Year
  Sex: Female

DRUGS (17)
  1. CLOTRIMAZOLE [Concomitant]
  2. FOLIC ACID [Concomitant]
     Dosage: 5 MG, WEEKLY
  3. QUININE [Concomitant]
     Dosage: 300 MG, AT NIGHT
  4. COLOXYL WITH SENNA [Concomitant]
     Dosage: 2 TABLETS AT NIGHT
  5. OMEPRAZOLE [Concomitant]
     Dosage: 20 MG, 2X/DAY
  6. LIPITOR [Concomitant]
     Dosage: 80 MG, AT NIGHT
  7. PAROXETINE [Concomitant]
     Dosage: 40 MG, 1X/DAY AT LUNCHTIME
  8. ALENDRONATE SODIUM [Concomitant]
     Dosage: ONE TABLET WEEKLY
  9. VARENICLINE TARTRATE [Suspect]
     Indication: SMOKING CESSATION THERAPY
     Dosage: 1 MG, 2X/DAY
     Route: 048
  10. FENTANYL [Interacting]
     Indication: BACK PAIN
     Dosage: 50 UG ONCE EVERY THREE DAYS
  11. PREDNISONE [Concomitant]
     Dosage: 3 MG, 1X/DAY
  12. ACETYLSALICYLIC ACID [Concomitant]
     Dosage: 100 MG, 1X/DAY
  13. AMOXICILLIN [Concomitant]
     Dosage: 500 MG, 3X/DAY
  14. METHOTREXATE [Concomitant]
     Dosage: 10 MG, WEEKLY
  15. HUMALOG [Concomitant]
     Dosage: 22 IU, 2X/DAY
     Route: 058
  16. FOLIC ACID [Concomitant]
     Dosage: 10 MG, WEEKLY
  17. VALPROATE SODIUM [Concomitant]
     Dosage: 100 MG, 2X/DAY

REACTIONS (5)
  - ABDOMINAL PAIN UPPER [None]
  - STRESS [None]
  - DRUG INTERACTION [None]
  - CONSTIPATION [None]
  - FLATULENCE [None]
